FAERS Safety Report 13767803 (Version 16)
Quarter: 2019Q4

REPORT INFORMATION
  Report Type: Spontaneous
  Country: US (occurrence: US)
  Receive Date: 20170719
  Receipt Date: 20191114
  Transmission Date: 20200122
  Serious: Yes (Hospitalization, Other)
  Sender: FDA-Public Use
  Company Number: US-PFIZER INC-2017305981

PATIENT
  Age: 85 Year
  Sex: Female
  Weight: 61 kg

DRUGS (36)
  1. IBRANCE [Suspect]
     Active Substance: PALBOCICLIB
     Dosage: 125 MG, CYCLIC (EVERY DAY FOR 21 DAYS ON, 7 DAYS OFF, TAKE WHOLE WITH WATER)
     Route: 048
  2. IBRANCE [Suspect]
     Active Substance: PALBOCICLIB
     Dosage: 125 MG, CYCLIC (EVERY DAY FOR 21 DAYS ON, 7 DAYS OFF, TAKE WHOLE WITH WATER)
     Route: 048
  3. IBRANCE [Suspect]
     Active Substance: PALBOCICLIB
     Dosage: 100 MG, UNK
     Dates: start: 2019
  4. LETROZOLE. [Suspect]
     Active Substance: LETROZOLE
     Indication: BREAST CANCER METASTATIC
     Dosage: 2.5 MG, 1X/DAY
     Dates: start: 20170701
  5. LISINOPRIL. [Concomitant]
     Active Substance: LISINOPRIL
     Dosage: UNK
     Dates: end: 2018
  6. LOSARTAN POTASSIUM. [Concomitant]
     Active Substance: LOSARTAN POTASSIUM
     Indication: BLOOD PRESSURE ABNORMAL
     Dosage: 50 MG, UNK
     Dates: start: 2015, end: 20190430
  7. VOLTAREN [Concomitant]
     Active Substance: DICLOFENAC SODIUM
     Indication: PAIN
     Dosage: UNK
     Dates: start: 201610
  8. IBRANCE [Suspect]
     Active Substance: PALBOCICLIB
     Indication: BREAST CANCER METASTATIC
     Dosage: 125 MG, CYCLIC (TAKE ONE CAPSULE ONCE DAILY WITH FOOD FOR 21 DAYS, THEN 7 DAYS OFF)
     Route: 048
     Dates: start: 201706
  9. IBRANCE [Suspect]
     Active Substance: PALBOCICLIB
     Dosage: 125 MG, CYCLIC (WITH FOOD EVERY DAY FOR 21 DAYS ON, THEN 7 DAYS OFF, TAKE WHOLE WITH WATER)
     Route: 048
     Dates: start: 20170701
  10. IBRANCE [Suspect]
     Active Substance: PALBOCICLIB
     Dosage: UNK (ME OFF IBRANCE FOR TWO WEEKS, SOMETIMES IT^S FOUR WEEKS.)
  11. BENZONATATE. [Concomitant]
     Active Substance: BENZONATATE
     Dosage: UNK
  12. IPRATROPIUM BROMIDE. [Concomitant]
     Active Substance: IPRATROPIUM BROMIDE
     Dosage: UNK, AS NEEDED
  13. ONDANSETRON [Concomitant]
     Active Substance: ONDANSETRON
     Dosage: 8 MG, UNK
     Dates: start: 20170701
  14. VANCOMYCIN HCL [Concomitant]
     Active Substance: VANCOMYCIN HYDROCHLORIDE
     Dosage: UNK
     Dates: end: 2017
  15. MUPIROCIN. [Concomitant]
     Active Substance: MUPIROCIN
     Dosage: UNK
     Dates: start: 2017, end: 2018
  16. LEVOFLOXACIN. [Concomitant]
     Active Substance: LEVOFLOXACIN
     Indication: HYPERSENSITIVITY
     Dosage: 750 MG, UNK
     Dates: start: 2012
  17. TRAMADOL HCL [Concomitant]
     Active Substance: TRAMADOL HYDROCHLORIDE
     Dosage: 50 MG, UNK
     Dates: end: 2016
  18. METOPROLOL SUCCINATE. [Concomitant]
     Active Substance: METOPROLOL SUCCINATE
     Dosage: 25 MG, UNK
     Dates: start: 2000
  19. DOXYCYCLINE. [Concomitant]
     Active Substance: DOXYCYCLINE
     Dosage: UNK
     Dates: end: 2019
  20. IBRANCE [Suspect]
     Active Substance: PALBOCICLIB
     Dosage: 100 MG, UNK
     Dates: start: 20190312, end: 2019
  21. OMEPRAZOLE. [Concomitant]
     Active Substance: OMEPRAZOLE
     Dosage: UNK
  22. IBRANCE [Suspect]
     Active Substance: PALBOCICLIB
     Dosage: 125 MG, CYCLIC (TAKE ONE CAPSULE ONCE DAILY WITH FOOD FOR 21 DAYS, THEN 7 DAYS OFF)
     Route: 048
  23. IPRATROPIUM [Concomitant]
     Active Substance: IPRATROPIUM
     Indication: HYPERSENSITIVITY
     Dosage: UNK
     Dates: start: 2012
  24. LEVOFLOXACIN. [Concomitant]
     Active Substance: LEVOFLOXACIN
     Dosage: UNK
  25. OMEPRAZOLE. [Concomitant]
     Active Substance: OMEPRAZOLE
     Dosage: 40 MG, UNK
     Dates: start: 2000, end: 2016
  26. ONDANSETRON [Concomitant]
     Active Substance: ONDANSETRON
     Indication: PROPHYLAXIS OF NAUSEA AND VOMITING
     Dosage: UNK
     Dates: start: 201705
  27. ONDANSETRON [Concomitant]
     Active Substance: ONDANSETRON
     Dosage: UNK
     Dates: start: 201706
  28. VOLTAREN [Concomitant]
     Active Substance: DICLOFENAC SODIUM
     Indication: ARTHRALGIA
     Dosage: UNK
     Dates: start: 2017
  29. AZITHROMYCIN ANHYDROUS. [Concomitant]
     Active Substance: AZITHROMYCIN ANHYDROUS
     Dosage: 600 MG, UNK
     Dates: start: 2018
  30. MUPIROCIN. [Concomitant]
     Active Substance: MUPIROCIN
     Indication: IMPAIRED HEALING
     Dosage: UNK
     Dates: end: 2018
  31. BENZONATATE. [Concomitant]
     Active Substance: BENZONATATE
     Dosage: UNK
     Dates: start: 201907
  32. LISINOPRIL. [Concomitant]
     Active Substance: LISINOPRIL
     Dosage: 20 MG, UNK
     Dates: start: 201904
  33. POTASSIUM CHLORIDE. [Concomitant]
     Active Substance: POTASSIUM CHLORIDE
     Dosage: 10 MEQ, UNK
     Dates: start: 2000
  34. IBRANCE [Suspect]
     Active Substance: PALBOCICLIB
     Dosage: 100 MG, CYCLIC (ONCE A DAY FOR 21 DAYS- OFF SEVEN DAYS- THEN REPEAT)
     Dates: start: 20170701
  35. METOPROLOL. [Concomitant]
     Active Substance: METOPROLOL
     Dosage: 25 MG, UNK
     Dates: start: 2000
  36. DOXYCYCLINE. [Concomitant]
     Active Substance: DOXYCYCLINE
     Indication: UPPER RESPIRATORY TRACT INFECTION
     Dosage: UNK
     Dates: end: 2018

REACTIONS (24)
  - Red blood cell count decreased [Not Recovered/Not Resolved]
  - White blood cell count decreased [Not Recovered/Not Resolved]
  - Prescription drug used without a prescription [Unknown]
  - Flatulence [Not Recovered/Not Resolved]
  - Impaired healing [Recovered/Resolved]
  - Staphylococcal infection [Unknown]
  - Diarrhoea [Recovered/Resolved]
  - Laboratory test abnormal [Recovered/Resolved]
  - Constipation [Not Recovered/Not Resolved]
  - Rash [Unknown]
  - Arthralgia [Not Recovered/Not Resolved]
  - Pseudomonas infection [Unknown]
  - Abdominal discomfort [Not Recovered/Not Resolved]
  - Upper respiratory tract infection [Recovered/Resolved]
  - Lethargy [Not Recovered/Not Resolved]
  - Cardiovascular disorder [Unknown]
  - Blood count abnormal [Unknown]
  - Nausea [Recovered/Resolved]
  - Localised infection [Not Recovered/Not Resolved]
  - Full blood count decreased [Recovered/Resolved]
  - Haematoma [Unknown]
  - Fatigue [Not Recovered/Not Resolved]
  - Rash pruritic [Not Recovered/Not Resolved]
  - Decreased immune responsiveness [Not Recovered/Not Resolved]

NARRATIVE: CASE EVENT DATE: 201608
